FAERS Safety Report 20763462 (Version 3)
Quarter: 2022Q2

REPORT INFORMATION
  Report Type: Spontaneous
  Country: JP (occurrence: JP)
  Receive Date: 20220428
  Receipt Date: 20220601
  Transmission Date: 20220720
  Serious: Yes (Hospitalization, Other)
  Sender: FDA-Public Use
  Company Number: JP-MSD-M2022-16884

PATIENT
  Age: 72 Year
  Sex: Male

DRUGS (1)
  1. MOLNUPIRAVIR [Suspect]
     Active Substance: MOLNUPIRAVIR
     Indication: COVID-19 treatment
     Dosage: 800 MILLIGRAM, BID
     Route: 048
     Dates: start: 20220330, end: 20220403

REACTIONS (3)
  - COVID-19 [Unknown]
  - Diabetes mellitus [Unknown]
  - Emphysema [Unknown]

NARRATIVE: CASE EVENT DATE: 20220101
